FAERS Safety Report 24270362 (Version 1)
Quarter: 2024Q3

REPORT INFORMATION
  Report Type: Report from Study
  Country: US (occurrence: US)
  Receive Date: 20240830
  Receipt Date: 20240830
  Transmission Date: 20241016
  Serious: Yes (Other)
  Sender: BIOGEN
  Company Number: US-BIOGEN-2024BI01279891

PATIENT
  Age: 56 Year
  Sex: Male

DRUGS (3)
  1. VUMERITY [Suspect]
     Active Substance: DIROXIMEL FUMARATE
     Indication: Multiple sclerosis
     Dosage: MAINTENANCE DOSE
     Route: 050
     Dates: start: 2022
  2. LYRICA [Concomitant]
     Active Substance: PREGABALIN
     Indication: Product used for unknown indication
     Route: 050
  3. COLESTIPOL HYDROCHLORIDE [Concomitant]
     Active Substance: COLESTIPOL HYDROCHLORIDE
     Indication: Product used for unknown indication
     Route: 050

REACTIONS (1)
  - Crohn^s disease [Unknown]

NARRATIVE: CASE EVENT DATE: 20230522
